FAERS Safety Report 7216072-5 (Version None)
Quarter: 2011Q1

REPORT INFORMATION
  Report Type: 
  Country: None (occurrence: None)
  Receive Date: 20110107
  Receipt Date: 20110105
  Transmission Date: 20110831
  Serious: Yes (Life-Threatening, Hospitalization)
  Sender: FDA-Public Use
  Company Number: US-B.I. PHARMACEUTICALS,INC./RIDGEFIELD-2010-BP-13265BP

PATIENT
  Age: 75 Year
  Sex: Male
  Weight: 89.4 kg

DRUGS (7)
  1. PRADAXA [Suspect]
     Indication: ATRIAL FIBRILLATION
  2. DOXAZOSIN [Concomitant]
  3. ATENOLOL [Concomitant]
  4. LIPITOR [Concomitant]
  5. PRADAXA [Suspect]
     Indication: CEREBROVASCULAR ACCIDENT PROPHYLAXIS
     Dosage: 300 MG
     Route: 048
     Dates: start: 20101101, end: 20101127
  6. AVODART [Concomitant]
  7. EXFORGE [Concomitant]

REACTIONS (18)
  - SUBDURAL HAEMORRHAGE [None]
  - BRAIN OEDEMA [None]
  - PYREXIA [None]
  - ASPIRATION [None]
  - FALL [None]
  - CEREBRAL HAEMORRHAGE [None]
  - BRAIN MIDLINE SHIFT [None]
  - SUBARACHNOID HAEMORRHAGE [None]
  - SYNCOPE [None]
  - DYSPHAGIA [None]
  - URINARY TRACT INFECTION [None]
  - RESPIRATORY FAILURE [None]
  - INTRACRANIAL PRESSURE INCREASED [None]
  - SKULL FRACTURE [None]
  - SEPSIS [None]
  - BRAIN CONTUSION [None]
  - INTRACRANIAL HAEMATOMA [None]
  - ENCEPHALOPATHY [None]
